FAERS Safety Report 4608614-0 (Version None)
Quarter: 2005Q1

REPORT INFORMATION
  Report Type: 
  Country: None (occurrence: None)
  Receive Date: 20050311
  Receipt Date: 20050302
  Transmission Date: 20050727
  Serious: Yes (Other)
  Sender: FDA-Public Use
  Company Number: CHNY2005DE00499

PATIENT
  Sex: Male

DRUGS (1)
  1. NICOTINE [Suspect]
     Indication: SMOKING CESSATION THERAPY
     Dosage: SEE IMAGE
     Route: 062

REACTIONS (4)
  - HEARING IMPAIRED [None]
  - NAUSEA [None]
  - RASH GENERALISED [None]
  - VOMITING [None]
